FAERS Safety Report 22657936 (Version 1)
Quarter: 2023Q2

REPORT INFORMATION
  Report Type: Report from Study
  Country: US (occurrence: US)
  Receive Date: 20230630
  Receipt Date: 20230630
  Transmission Date: 20230721
  Serious: Yes (Other)
  Sender: FDA-Public Use
  Company Number: US-GILEAD-2023-0634494

PATIENT
  Age: 63 Year
  Sex: Female

DRUGS (2)
  1. AMBRISENTAN [Suspect]
     Active Substance: AMBRISENTAN
     Indication: Pulmonary arterial hypertension
     Dosage: 10 MG, QD
     Route: 065
     Dates: start: 202102
  2. SILDENAFIL CITRATE [Suspect]
     Active Substance: SILDENAFIL CITRATE
     Indication: Pulmonary hypertension
     Dosage: 20 MG, TID
     Route: 065
     Dates: start: 20210208, end: 20230622

REACTIONS (4)
  - Syncope [Recovering/Resolving]
  - Dizziness [Recovering/Resolving]
  - Blood pressure decreased [Recovering/Resolving]
  - Headache [Recovering/Resolving]
